FAERS Safety Report 23118904 (Version 1)
Quarter: 2023Q4

REPORT INFORMATION
  Report Type: Report from Study
  Country: US (occurrence: US)
  Receive Date: 20231028
  Receipt Date: 20231028
  Transmission Date: 20240109
  Serious: Yes (Hospitalization, Other)
  Sender: FDA-Public Use
  Company Number: US-TAKEDA-2023TUS104524

PATIENT
  Sex: Female

DRUGS (1)
  1. LANADELUMAB [Suspect]
     Active Substance: LANADELUMAB
     Indication: Complement deficiency disease
     Dosage: 300 MILLIGRAM, Q2WEEKS
     Route: 058

REACTIONS (2)
  - Hereditary angioedema [Unknown]
  - Clostridium difficile infection [Unknown]
